FAERS Safety Report 20247787 (Version 1)
Quarter: 2021Q4

REPORT INFORMATION
  Report Type: Spontaneous
  Country: US (occurrence: None)
  Receive Date: 20211228
  Receipt Date: 20211228
  Transmission Date: 20220304
  Serious: No
  Sender: FDA-Public Use
  Company Number: None

PATIENT
  Age: 23 Year
  Sex: Female

DRUGS (1)
  1. CINRYZE [Suspect]
     Active Substance: HUMAN C1-ESTERASE INHIBITOR
     Dosage: OTHER FREQUENCY : OTHER;?
     Route: 042
     Dates: start: 202110

REACTIONS (3)
  - Cholecystectomy [None]
  - Post procedural complication [None]
  - Headache [None]

NARRATIVE: CASE EVENT DATE: 20211220
